FAERS Safety Report 7866119-8 (Version None)
Quarter: 2011Q4

REPORT INFORMATION
  Report Type: 
  Country: None (occurrence: None)
  Receive Date: 20111028
  Receipt Date: 20111026
  Transmission Date: 20120403
  Serious: Yes (Death)
  Sender: FDA-Public Use
  Company Number: US-BAYER-2011-104424

PATIENT
  Sex: Male

DRUGS (3)
  1. INTERFERON BETA-1B [Suspect]
     Dosage: UNK
     Dates: start: 20081209, end: 20090729
  2. INTERFERON BETA-1B [Suspect]
     Dosage: UNK
     Dates: start: 19990827, end: 20070815
  3. INTERFERON BETA-1B [Suspect]
     Dosage: UNK
     Dates: start: 20110302, end: 20111025

REACTIONS (1)
  - DEATH [None]
